FAERS Safety Report 18700619 (Version 1)
Quarter: 2021Q1

REPORT INFORMATION
  Report Type: Other
  Country: IT (occurrence: IT)
  Receive Date: 20210105
  Receipt Date: 20210105
  Transmission Date: 20210419
  Serious: Yes (Hospitalization, Other)
  Sender: FDA-Public Use
  Company Number: IT-APOTEX-2020AP025173

PATIENT
  Age: 30 Year
  Sex: Male

DRUGS (5)
  1. LARGACTIL [CHLORPROMAZINE] [Suspect]
     Active Substance: CHLORPROMAZINE
     Indication: SUICIDE ATTEMPT
     Dosage: 5 DF, SINGLE
     Route: 048
     Dates: start: 20201216, end: 20201216
  2. LYRICA [Suspect]
     Active Substance: PREGABALIN
     Indication: SUICIDE ATTEMPT
     Dosage: 5 DF, SINGLE
     Route: 048
     Dates: start: 20201216, end: 20201216
  3. PAROXETINE. [Suspect]
     Active Substance: PAROXETINE
     Indication: SUICIDE ATTEMPT
     Dosage: 5 DF, SINGLE
     Route: 048
     Dates: start: 20201216, end: 20201216
  4. LEVOMEPROMAZINE [Suspect]
     Active Substance: LEVOMEPROMAZINE
     Indication: SUICIDE ATTEMPT
     Dosage: 8 DF, SINGLE
     Route: 048
     Dates: start: 20201216, end: 20201216
  5. DELORAZEPAM [Suspect]
     Active Substance: DELORAZEPAM
     Indication: SUICIDE ATTEMPT
     Dosage: 8 DF, SINGLE
     Route: 048
     Dates: start: 20201216, end: 20201216

REACTIONS (3)
  - Intentional overdose [Recovering/Resolving]
  - Depressed level of consciousness [Recovering/Resolving]
  - Suicide attempt [Recovering/Resolving]

NARRATIVE: CASE EVENT DATE: 20201216
